FAERS Safety Report 6140115-3 (Version None)
Quarter: 2009Q2

REPORT INFORMATION
  Report Type: 
  Country: None (occurrence: None)
  Receive Date: 20090401
  Receipt Date: 20090326
  Transmission Date: 20091009
  Serious: Yes (Hospitalization)
  Sender: FDA-Public Use
  Company Number: DE-BAYER-200916963GPV

PATIENT
  Age: 68 Year
  Sex: Male

DRUGS (1)
  1. CIPROBAY [Suspect]
     Indication: INFECTION PROPHYLAXIS
     Dosage: UNIT DOSE: 250 MG
     Route: 048

REACTIONS (6)
  - AGITATION [None]
  - CONFUSIONAL STATE [None]
  - DISORIENTATION [None]
  - MUSCLE CONTRACTIONS INVOLUNTARY [None]
  - MYOKYMIA [None]
  - RESTLESSNESS [None]
